FAERS Safety Report 8032837-4 (Version None)
Quarter: 2011Q4

REPORT INFORMATION
  Report Type: 
  Country: None (occurrence: None)
  Receive Date: 20111202
  Receipt Date: 20091029
  Transmission Date: 20120403
  Serious: Yes (Hospitalization)
  Sender: FDA-Public Use
  Company Number: 2009-196218-NL

PATIENT
  Age: 40 Year
  Sex: Female
  Weight: 61.2356 kg

DRUGS (1)
  1. NUVARING [Suspect]
     Indication: CONTRACEPTION
     Dates: start: 20070401, end: 20070508

REACTIONS (8)
  - METRORRHAGIA [None]
  - VARICOSE VEIN [None]
  - URINARY TRACT INFECTION [None]
  - ANXIETY [None]
  - DEPRESSION [None]
  - PULMONARY EMBOLISM [None]
  - NIPPLE PAIN [None]
  - LUNG NEOPLASM [None]
